FAERS Safety Report 9215557 (Version 1)
Quarter: 2013Q2

REPORT INFORMATION
  Report Type: Spontaneous
  Country: TR (occurrence: TR)
  Receive Date: 20130407
  Receipt Date: 20130407
  Transmission Date: 20140414
  Serious: Yes (Other)
  Sender: FDA-Public Use
  Company Number: TR-AMGEN-TURSP2013023476

PATIENT
  Age: 36 Year
  Sex: Male
  Weight: 84 kg

DRUGS (2)
  1. ENBREL [Suspect]
     Indication: ANKYLOSING SPONDYLITIS
     Dosage: 25 MG, 2X/WEEK
     Route: 058
     Dates: start: 20081118, end: 201106
  2. ENBREL [Suspect]
     Dosage: 50 MG, QWK
     Route: 058
     Dates: start: 201106

REACTIONS (4)
  - Weight increased [Recovered/Resolved]
  - Dermal cyst [Recovered/Resolved]
  - Hepatic enzyme increased [Recovered/Resolved]
  - Localised infection [Recovered/Resolved]
